FAERS Safety Report 16159175 (Version 1)
Quarter: 2019Q2

REPORT INFORMATION
  Report Type: Spontaneous
  Country: IT (occurrence: IT)
  Receive Date: 20190404
  Receipt Date: 20190404
  Transmission Date: 20190711
  Serious: Yes (Hospitalization)
  Sender: FDA-Public Use
  Company Number: IT-TEVA-2019-IT-1033118

PATIENT
  Age: 68 Year
  Sex: Female

DRUGS (1)
  1. RYTMONORM [Suspect]
     Active Substance: PROPAFENONE
     Route: 065

REACTIONS (1)
  - Cardiac fibrillation [Recovered/Resolved]

NARRATIVE: CASE EVENT DATE: 20190314
